FAERS Safety Report 7408177-0 (Version None)
Quarter: 2011Q1

REPORT INFORMATION
  Report Type: 
  Country: None (occurrence: None)
  Receive Date: 20110331
  Receipt Date: 20110309
  Transmission Date: 20110831
  Serious: Yes (Death, Hospitalization, Other)
  Sender: FDA-Public Use
  Company Number: 2128643-2011-00017

PATIENT
  Sex: Male

DRUGS (1)
  1. TRIAD ALCOHOL SWAB STICKS [Suspect]

REACTIONS (1)
  - PRODUCT QUALITY ISSUE [None]
